FAERS Safety Report 14761514 (Version 1)
Quarter: 2018Q2

REPORT INFORMATION
  Report Type: Spontaneous
  Country: US (occurrence: US)
  Receive Date: 20180416
  Receipt Date: 20180416
  Transmission Date: 20180711
  Serious: No
  Sender: FDA-Public Use
  Company Number: US-BION-006102

PATIENT
  Age: 64 Year
  Sex: Female
  Weight: 59.42 kg

DRUGS (1)
  1. EQUATE NAPROXEN SODIUM [Suspect]
     Active Substance: NAPROXEN SODIUM
     Indication: BACK PAIN
     Dosage: 2 SOFTGELS, TAKE TWO SOFTGELS, TWICE A DAY OR EVERY 12 HOURS
     Route: 048
     Dates: start: 20170302, end: 20170307

REACTIONS (3)
  - Drug ineffective [Not Recovered/Not Resolved]
  - Incorrect dose administered [Not Recovered/Not Resolved]
  - Drug prescribing error [Not Recovered/Not Resolved]

NARRATIVE: CASE EVENT DATE: 20170302
